FAERS Safety Report 9104525 (Version 2)
Quarter: 2013Q1

REPORT INFORMATION
  Report Type: Spontaneous
  Country: DZ (occurrence: DZ)
  Receive Date: 20130220
  Receipt Date: 20130311
  Transmission Date: 20140127
  Serious: Yes (Other)
  Sender: FDA-Public Use
  Company Number: DZ-AMGEN-DZASP2013011242

PATIENT
  Age: 7 Year
  Sex: Female

DRUGS (4)
  1. ENBREL [Suspect]
     Indication: JUVENILE IDIOPATHIC ARTHRITIS
     Dosage: 13.6 MG, WEEKLY
     Dates: start: 20121216, end: 20130130
  2. METHOTREXATE [Concomitant]
     Indication: JUVENILE IDIOPATHIC ARTHRITIS
     Dosage: 12.5 MG, WEEKLY
     Dates: start: 201101, end: 20130210
  3. METHOTREXATE [Concomitant]
     Dosage: UNK
     Dates: start: 20130224
  4. NAPROXEN [Concomitant]
     Indication: PAIN
     Dosage: 275 MG, 1X/DAY FOR IN CASE OF PAIN
     Dates: start: 201101

REACTIONS (2)
  - Purpura [Recovered/Resolved]
  - Vasculitis [Unknown]
